FAERS Safety Report 7453387-X (Version None)
Quarter: 2011Q2

REPORT INFORMATION
  Report Type: 
  Country: None (occurrence: None)
  Receive Date: 20110502
  Receipt Date: 20110420
  Transmission Date: 20111010
  Serious: Yes (Other)
  Sender: FDA-Public Use
  Company Number: US-MYLANLABS-2011S1004782

PATIENT
  Age: 54 Year
  Sex: Male
  Weight: 108.86 kg

DRUGS (11)
  1. LEVOTHYROXINE [Concomitant]
     Indication: HYPOTHYROIDISM
  2. FENTANYL-100 [Suspect]
     Dosage: CHANGED Q72H.
     Route: 062
     Dates: start: 20110307, end: 20110309
  3. CRESTOR [Concomitant]
     Indication: BLOOD CHOLESTEROL
  4. TRICOR [Concomitant]
  5. FENTANYL-100 [Suspect]
     Indication: BACK PAIN
     Dosage: CHANGED Q72H.
     Route: 062
     Dates: start: 20110307, end: 20110309
  6. ZOCOR [Concomitant]
     Indication: BLOOD CHOLESTEROL
  7. COUMADIN [Concomitant]
     Indication: ANTICOAGULANT THERAPY
  8. ZYLOPRIM [Concomitant]
  9. ASPIRIN [Concomitant]
  10. VASOTEC [Concomitant]
  11. AMOXICILLIN [Concomitant]

REACTIONS (6)
  - INTESTINAL OBSTRUCTION [None]
  - PRURITUS ALLERGIC [None]
  - ADVERSE EVENT [None]
  - SLEEP TERROR [None]
  - FAECALOMA [None]
  - AGITATION [None]
